FAERS Safety Report 17141216 (Version 6)
Quarter: 2021Q1

REPORT INFORMATION
  Report Type: Spontaneous
  Country: US (occurrence: US)
  Receive Date: 20191211
  Receipt Date: 20210316
  Transmission Date: 20210419
  Serious: Yes (Other)
  Sender: FDA-Public Use
  Company Number: US-GILEAD-2019-0441963

PATIENT
  Age: 39 Year
  Sex: Male
  Weight: 81.18 kg

DRUGS (83)
  1. TOPIRAMATE. [Concomitant]
     Active Substance: TOPIRAMATE
  2. RELISTOR [Concomitant]
     Active Substance: METHYLNALTREXONE BROMIDE
  3. TRAZODONE [Concomitant]
     Active Substance: TRAZODONE HYDROCHLORIDE
  4. FLUTICASONE. [Concomitant]
     Active Substance: FLUTICASONE
  5. MAGNESIUM OXIDE. [Concomitant]
     Active Substance: MAGNESIUM OXIDE
  6. THERA?M [Concomitant]
  7. ACYCLOVIR [ACICLOVIR] [Concomitant]
     Active Substance: ACYCLOVIR
  8. FISH OIL [Concomitant]
     Active Substance: FISH OIL
  9. VALCYCLOR [Concomitant]
  10. STRIBILD [Suspect]
     Active Substance: COBICISTAT\ELVITEGRAVIR\EMTRICITABINE\TENOFOVIR DISOPROXIL FUMARATE
     Indication: HEPATITIS B
     Dosage: UNK
     Route: 048
     Dates: start: 20161205, end: 201612
  11. PROAIR HFA [Concomitant]
     Active Substance: ALBUTEROL SULFATE
  12. LEXAPRO [Concomitant]
     Active Substance: ESCITALOPRAM OXALATE
  13. KETOCONAZOLE. [Concomitant]
     Active Substance: KETOCONAZOLE
  14. MORPHINE SULFATE. [Concomitant]
     Active Substance: MORPHINE SULFATE
  15. CLOTRIMAZOLE AND BETAMETHASONE [Concomitant]
     Active Substance: BETAMETHASONE\CLOTRIMAZOLE
  16. SELENIUM [Concomitant]
     Active Substance: SELENIUM
  17. RESTASIS [Concomitant]
     Active Substance: CYCLOSPORINE
  18. ASCORBIC ACID. [Concomitant]
     Active Substance: ASCORBIC ACID
  19. DOXAZOSIN [Concomitant]
     Active Substance: DOXAZOSIN MESYLATE
  20. ATORVASTATIN [Concomitant]
     Active Substance: ATORVASTATIN
  21. EPINASTINE HYDROCHLORIDE. [Concomitant]
     Active Substance: EPINASTINE HYDROCHLORIDE
  22. CRESTOR [Concomitant]
     Active Substance: ROSUVASTATIN CALCIUM
  23. ESCITALOPRAM [Concomitant]
     Active Substance: ESCITALOPRAM OXALATE
  24. CANASA [Concomitant]
     Active Substance: MESALAMINE
  25. DICYCLOMINE HYDROCHLORIDE. [Concomitant]
     Active Substance: DICYCLOMINE HYDROCHLORIDE
  26. EGRIFTA [Concomitant]
     Active Substance: TESAMORELIN ACETATE
  27. NYSTATIN. [Concomitant]
     Active Substance: NYSTATIN
  28. TAMSULOSIN [Concomitant]
     Active Substance: TAMSULOSIN
  29. METOCLOPRAMIDE. [Concomitant]
     Active Substance: METOCLOPRAMIDE
  30. SUCCINYL [Concomitant]
     Active Substance: SUCCINYLCHOLINE CHLORIDE
  31. STRIBILD [Suspect]
     Active Substance: COBICISTAT\ELVITEGRAVIR\EMTRICITABINE\TENOFOVIR DISOPROXIL FUMARATE
     Dosage: UNK
     Route: 065
     Dates: start: 201612, end: 201811
  32. AMITIZA [Concomitant]
     Active Substance: LUBIPROSTONE
  33. ADDERALL [Concomitant]
     Active Substance: AMPHETAMINE ASPARTATE\AMPHETAMINE SULFATE\DEXTROAMPHETAMINE SACCHARATE\DEXTROAMPHETAMINE SULFATE
  34. PREVIDENT 5000 ENAMEL PROTECT [Concomitant]
     Active Substance: POTASSIUM NITRATE\SODIUM FLUORIDE
  35. LEVOFLOXACIN. [Concomitant]
     Active Substance: LEVOFLOXACIN
  36. LIDODERM [Concomitant]
     Active Substance: LIDOCAINE
  37. METRONIDAZOLE. [Concomitant]
     Active Substance: METRONIDAZOLE
  38. PROPOFOL. [Concomitant]
     Active Substance: PROPOFOL
  39. ATRIPLA [Suspect]
     Active Substance: EFAVIRENZ\EMTRICITABINE\TENOFOVIR DISOPROXIL FUMARATE
     Indication: HEPATITIS B
     Dosage: UNK
     Route: 048
     Dates: start: 201612, end: 2017
  40. CIALIS [Concomitant]
     Active Substance: TADALAFIL
  41. FAMCICLOVIR. [Concomitant]
     Active Substance: FAMCICLOVIR
  42. ABILIFY [Concomitant]
     Active Substance: ARIPIPRAZOLE
  43. TAMIFLU [Concomitant]
     Active Substance: OSELTAMIVIR PHOSPHATE
  44. PATANOL [Concomitant]
     Active Substance: OLOPATADINE HYDROCHLORIDE
  45. DULERA [Concomitant]
     Active Substance: FORMOTEROL FUMARATE DIHYDRATE\MOMETASONE FUROATE
  46. HYDROCHLOROTHIAZIDE. [Concomitant]
     Active Substance: HYDROCHLOROTHIAZIDE
  47. ENOXAPARIN [Concomitant]
     Active Substance: ENOXAPARIN
  48. BUPIVACAINE. [Concomitant]
     Active Substance: BUPIVACAINE
  49. STRIBILD [Suspect]
     Active Substance: COBICISTAT\ELVITEGRAVIR\EMTRICITABINE\TENOFOVIR DISOPROXIL FUMARATE
     Indication: HIV INFECTION
     Dosage: UNK
     Route: 048
     Dates: start: 2009, end: 201612
  50. BIKTARVY [Concomitant]
     Active Substance: BICTEGRAVIR SODIUM\EMTRICITABINE\TENOFOVIR ALAFENAMIDE FUMARATE
  51. NASONEX [Concomitant]
     Active Substance: MOMETASONE FUROATE
  52. RIZATRIPTAN. [Concomitant]
     Active Substance: RIZATRIPTAN
  53. POLYETHYLENE [Concomitant]
     Active Substance: HIGH DENSITY POLYETHYLENE
  54. PREDNISONE. [Concomitant]
     Active Substance: PREDNISONE
  55. PHENTERMINE. [Concomitant]
     Active Substance: PHENTERMINE
  56. LEVOCETIRIZINE DIHYDROCHLORIDE. [Concomitant]
     Active Substance: LEVOCETIRIZINE DIHYDROCHLORIDE
  57. CALCIUM CARBONATE. [Concomitant]
     Active Substance: CALCIUM CARBONATE
  58. KLOR?CON [Concomitant]
     Active Substance: POTASSIUM CHLORIDE
  59. LANSOPRAZOLE. [Concomitant]
     Active Substance: LANSOPRAZOLE
  60. CIPROFLOXACIN. [Concomitant]
     Active Substance: CIPROFLOXACIN
  61. ACIPHEX [Concomitant]
     Active Substance: RABEPRAZOLE SODIUM
  62. GABAPENTIN. [Concomitant]
     Active Substance: GABAPENTIN
  63. HYDROCORTISONE. [Concomitant]
     Active Substance: HYDROCORTISONE
  64. VITAMIN C [ASCORBIC ACID;BIOFLAVONOIDS] [Concomitant]
  65. PROCTOZONE HC [Concomitant]
     Active Substance: HYDROCORTISONE
  66. LIDOCAINE 5% EXTRA [Concomitant]
  67. JALYN [Concomitant]
     Active Substance: DUTASTERIDE\TAMSULOSIN HYDROCHLORIDE
  68. MIDODRINE [Concomitant]
     Active Substance: MIDODRINE
  69. ELESTAT [Concomitant]
     Active Substance: EPINASTINE HYDROCHLORIDE
  70. MAXALT?MLT [Concomitant]
     Active Substance: RIZATRIPTAN BENZOATE
  71. DEXAMETHASONE. [Concomitant]
     Active Substance: DEXAMETHASONE
  72. VANCOMYCIN [Concomitant]
     Active Substance: VANCOMYCIN
  73. MESALAMINE. [Concomitant]
     Active Substance: MESALAMINE
  74. ATRIPLA [Suspect]
     Active Substance: EFAVIRENZ\EMTRICITABINE\TENOFOVIR DISOPROXIL FUMARATE
     Indication: HIV INFECTION
     Dosage: UNK
     Route: 048
     Dates: start: 2009, end: 20150303
  75. STRIBILD [Suspect]
     Active Substance: COBICISTAT\ELVITEGRAVIR\EMTRICITABINE\TENOFOVIR DISOPROXIL FUMARATE
     Dosage: UNK
     Route: 065
     Dates: start: 20181109, end: 201811
  76. AZELATINE [Concomitant]
  77. ONDANSETRON [Concomitant]
     Active Substance: ONDANSETRON
  78. ACYCLOVIR ALPHARMA [ACICLOVIR] [Concomitant]
  79. FUROSEMIDE. [Concomitant]
     Active Substance: FUROSEMIDE
  80. PATANASE [Concomitant]
     Active Substance: OLOPATADINE HYDROCHLORIDE
  81. B?COMPLEX SQUIBB [Concomitant]
  82. TESTOSTERONE. [Concomitant]
     Active Substance: TESTOSTERONE
  83. MIDAZOLAM. [Concomitant]
     Active Substance: MIDAZOLAM

REACTIONS (19)
  - Chronic kidney disease [Unknown]
  - Lower limb fracture [Unknown]
  - Bone loss [Not Recovered/Not Resolved]
  - Osteopenia [Unknown]
  - Teeth brittle [Unknown]
  - Economic problem [Unknown]
  - Ankle fracture [Unknown]
  - Acute kidney injury [Not Recovered/Not Resolved]
  - Tooth fracture [Unknown]
  - Osteoporosis [Unknown]
  - Nephrolithiasis [Unknown]
  - Bone density decreased [Not Recovered/Not Resolved]
  - Anhedonia [Unknown]
  - Gallbladder disorder [Unknown]
  - Emotional distress [Unknown]
  - Anxiety [Unknown]
  - Ligament rupture [Unknown]
  - Tooth loss [Unknown]
  - Pain [Unknown]

NARRATIVE: CASE EVENT DATE: 2018
